FAERS Safety Report 8121219-2 (Version None)
Quarter: 2012Q1

REPORT INFORMATION
  Report Type: 
  Country: None (occurrence: None)
  Receive Date: 20120208
  Receipt Date: 20120201
  Transmission Date: 20120608
  Serious: Yes (Hospitalization)
  Sender: FDA-Public Use
  Company Number: JP-SANOFI-AVENTIS-2012SA006195

PATIENT
  Age: 91 Year
  Sex: Male

DRUGS (5)
  1. LANTUS [Suspect]
     Dosage: REDUCED DOSE
     Route: 065
  2. LANTUS [Suspect]
     Indication: TYPE 2 DIABETES MELLITUS
     Dosage: DOSE:3 UNIT(S)
     Route: 065
  3. INSULIN ASPART [Suspect]
     Dosage: REDUCED DOSE
     Route: 065
  4. INSULIN ASPART [Suspect]
     Indication: TYPE 2 DIABETES MELLITUS
     Dosage: 23, 15 AND 20 UNITS BEFORE BREAKFAST, LUNCH AND DINNER, RESPECTIVELY
     Route: 065
  5. DEXAMETHASONE [Concomitant]
     Indication: PROSTATE CANCER
     Dosage: AT THE AGE OF 88 YEARS

REACTIONS (2)
  - CUTANEOUS AMYLOIDOSIS [None]
  - INJECTION SITE MASS [None]
